FAERS Safety Report 14072523 (Version 1)
Quarter: 2017Q4

REPORT INFORMATION
  Report Type: Spontaneous
  Country: GB (occurrence: GB)
  Receive Date: 20171011
  Receipt Date: 20171011
  Transmission Date: 20180321
  Serious: Yes (Other)
  Sender: FDA-Public Use
  Company Number: PHHY2017GB146680

PATIENT
  Sex: Male

DRUGS (2)
  1. OXCARBAZEPINE. [Suspect]
     Active Substance: OXCARBAZEPINE
     Indication: PRODUCT USED FOR UNKNOWN INDICATION
     Dosage: 600 MG, QD
     Route: 065
  2. TEGRETOL [Suspect]
     Active Substance: CARBAMAZEPINE
     Indication: MYOTONIA CONGENITA
     Dosage: 400 MG, QD
     Route: 065

REACTIONS (9)
  - Loss of consciousness [Unknown]
  - Balance disorder [Unknown]
  - Disturbance in attention [Unknown]
  - Decreased appetite [Unknown]
  - Alopecia [Unknown]
  - Nausea [Unknown]
  - Feeling abnormal [Unknown]
  - Deep vein thrombosis [Unknown]
  - Abdominal distension [Unknown]
